FAERS Safety Report 10411346 (Version 4)
Quarter: 2015Q2

REPORT INFORMATION
  Report Type: Report from Study
  Country: CA (occurrence: CA)
  Receive Date: 20140826
  Receipt Date: 20150526
  Transmission Date: 20150821
  Serious: Yes (Hospitalization)
  Sender: FDA-Public Use
  Company Number: CA-AMGEN-CANSP2014064329

PATIENT
  Age: 83 Year
  Sex: Male
  Weight: 66.21 kg

DRUGS (1)
  1. PROLIA [Suspect]
     Active Substance: DENOSUMAB
     Indication: OSTEOPOROSIS
     Dosage: 60 MG, Q6MO
     Route: 058
     Dates: start: 20140623

REACTIONS (7)
  - Femoral neck fracture [Recovered/Resolved]
  - Hypocalcaemia [Recovering/Resolving]
  - Hyperkalaemia [Unknown]
  - Blood calcium decreased [Recovered/Resolved]
  - Adverse reaction [Recovered/Resolved]
  - Tremor [Recovered/Resolved]
  - Renal impairment [Unknown]

NARRATIVE: CASE EVENT DATE: 2014
